FAERS Safety Report 8157802-8 (Version None)
Quarter: 2012Q1

REPORT INFORMATION
  Report Type: 
  Country: None (occurrence: None)
  Receive Date: 20120222
  Receipt Date: 20120210
  Transmission Date: 20120608
  Serious: Yes (Hospitalization, Other)
  Sender: FDA-Public Use
  Company Number: US-ROCHE-1041295

PATIENT
  Sex: Female

DRUGS (2)
  1. XOLAIR [Suspect]
     Indication: ASTHMA
     Route: 065
     Dates: start: 20111201
  2. XOLAIR [Suspect]
     Route: 065
     Dates: start: 20111228

REACTIONS (5)
  - BLOOD PRESSURE DECREASED [None]
  - VOMITING [None]
  - MALAISE [None]
  - NAUSEA [None]
  - RASH [None]
